FAERS Safety Report 25859492 (Version 1)
Quarter: 2025Q3

REPORT INFORMATION
  Report Type: Spontaneous
  Country: US (occurrence: None)
  Receive Date: 20250926
  Receipt Date: 20250926
  Transmission Date: 20251020
  Serious: Yes (Other)
  Sender: FDA-CTU
  Company Number: None

PATIENT
  Age: 35 Year
  Sex: Male

DRUGS (2)
  1. ARGININE\CYANOCOBALAMIN\PYRIDOXINE\TADALAFIL\ZINC [Suspect]
     Active Substance: ARGININE\CYANOCOBALAMIN\PYRIDOXINE\TADALAFIL\ZINC
     Indication: Erectile dysfunction
     Dosage: FREQUENCY : DAILY;?
     Route: 048
     Dates: start: 20250826, end: 20250925
  2. TRAZODONE [Suspect]
     Active Substance: TRAZODONE HYDROCHLORIDE

REACTIONS (2)
  - Priapism [None]
  - Drug interaction [None]

NARRATIVE: CASE EVENT DATE: 20250925
